FAERS Safety Report 19611986 (Version 3)
Quarter: 2021Q4

REPORT INFORMATION
  Report Type: Report from Study
  Country: US (occurrence: US)
  Receive Date: 20210726
  Receipt Date: 20211006
  Transmission Date: 20220303
  Serious: Yes (Other)
  Sender: FDA-Public Use
  Company Number: US-BAYER-2021-176473

PATIENT

DRUGS (2)
  1. EYLEA [Suspect]
     Active Substance: AFLIBERCEPT
     Indication: Retinal vein occlusion
     Dosage: TOTAL EYLEA DOSE AND LAST DOSE WERE NOT RPEORTED
     Route: 031
     Dates: start: 20150727, end: 20180521
  2. EYLEA [Suspect]
     Active Substance: AFLIBERCEPT
     Indication: Macular oedema
     Dosage: RIGHT EYE, LAST DOSE PRIOR THE EVENT
     Route: 031
     Dates: start: 20180521, end: 20180521

REACTIONS (2)
  - Blindness [Recovering/Resolving]
  - Endophthalmitis [Recovered/Resolved]

NARRATIVE: CASE EVENT DATE: 20180523
